FAERS Safety Report 6402385-3 (Version None)
Quarter: 2009Q4

REPORT INFORMATION
  Report Type: 
  Country: None (occurrence: None)
  Receive Date: 20091015
  Receipt Date: 20090511
  Transmission Date: 20100525
  Serious: Yes (Other)
  Sender: FDA-Public Use
  Company Number: BR-PFIZER INC-2009211844

PATIENT
  Age: 29 Year

DRUGS (4)
  1. DOSTINEX [Suspect]
     Indication: BLOOD PROLACTIN INCREASED
     Dosage: 0.25 UNK, UNK
     Route: 048
     Dates: start: 20090507
  2. DOSTINEX [Suspect]
     Indication: ADENOMA BENIGN
  3. LOSARTAN [Concomitant]
     Indication: HYPERTENSION
     Dosage: UNK
     Dates: start: 20070101
  4. LEXAPRO [Concomitant]
     Indication: DEPRESSION
     Dosage: UNK
     Dates: start: 20081101

REACTIONS (7)
  - ANXIETY [None]
  - BRADYCARDIA [None]
  - CHEST PAIN [None]
  - DIZZINESS [None]
  - HEADACHE [None]
  - MENTAL DISORDER [None]
  - NAUSEA [None]
